FAERS Safety Report 20836298 (Version 3)
Quarter: 2022Q2

REPORT INFORMATION
  Report Type: Report from Study
  Country: US (occurrence: US)
  Receive Date: 20220516
  Receipt Date: 20220622
  Transmission Date: 20220721
  Serious: Yes (Hospitalization, Other)
  Sender: FDA-Public Use
  Company Number: US-BRISTOL-MYERS SQUIBB COMPANY-2022-040757

PATIENT
  Age: 61 Year
  Sex: Female
  Weight: 98.20 kg

DRUGS (21)
  1. NIVOLUMAB [Suspect]
     Active Substance: NIVOLUMAB
     Indication: Breast cancer metastatic
     Dosage: THERAPY DURATION: 1 HOUR 2 MINS
     Route: 042
     Dates: start: 20220502, end: 20220502
  2. BDC-1001 [Suspect]
     Active Substance: BDC-1001
     Indication: Breast cancer metastatic
     Route: 042
     Dates: start: 20220502, end: 20220502
  3. BDC-1001 [Suspect]
     Active Substance: BDC-1001
  4. MORPHINE SULFATE [Concomitant]
     Active Substance: MORPHINE SULFATE
     Indication: Product used for unknown indication
  5. MORPHINE SULFATE [Concomitant]
     Active Substance: MORPHINE SULFATE
     Dates: start: 20200101
  6. LISINOPRIL [Concomitant]
     Active Substance: LISINOPRIL
     Indication: Product used for unknown indication
  7. LISINOPRIL [Concomitant]
     Active Substance: LISINOPRIL
     Dates: start: 20150101
  8. OXYCODONE HYDROCHLORIDE [Concomitant]
     Active Substance: OXYCODONE HYDROCHLORIDE
     Indication: Product used for unknown indication
  9. OXYCODONE HYDROCHLORIDE [Concomitant]
     Active Substance: OXYCODONE HYDROCHLORIDE
     Dates: start: 20220412
  10. TRAZODONE HCL [Concomitant]
     Active Substance: TRAZODONE HYDROCHLORIDE
     Indication: Product used for unknown indication
  11. TRAZODONE HCL [Concomitant]
     Active Substance: TRAZODONE HYDROCHLORIDE
     Dates: start: 20180101
  12. VENLAFAXINE HCL [Concomitant]
     Active Substance: VENLAFAXINE HYDROCHLORIDE
     Indication: Product used for unknown indication
  13. VENLAFAXINE HCL [Concomitant]
     Active Substance: VENLAFAXINE HYDROCHLORIDE
     Dates: start: 20180101
  14. ACETAMINOPHEN [Concomitant]
     Active Substance: ACETAMINOPHEN
     Indication: Product used for unknown indication
  15. ACETAMINOPHEN [Concomitant]
     Active Substance: ACETAMINOPHEN
     Dates: start: 20220101
  16. BUSPIRONE HCL [Concomitant]
     Active Substance: BUSPIRONE HYDROCHLORIDE
     Indication: Product used for unknown indication
  17. BUSPIRONE HCL [Concomitant]
     Active Substance: BUSPIRONE HYDROCHLORIDE
     Dates: start: 20190101
  18. VITAMINS NOS [Concomitant]
     Active Substance: VITAMINS
     Indication: Product used for unknown indication
  19. VITAMINS NOS [Concomitant]
     Active Substance: VITAMINS
     Dates: start: 20220401
  20. LOPERAMIDE HYDROCHLORIDE [Concomitant]
     Active Substance: LOPERAMIDE HYDROCHLORIDE
     Indication: Product used for unknown indication
     Dates: start: 20180101
  21. ERGOCALCIFEROL [Concomitant]
     Active Substance: ERGOCALCIFEROL
     Indication: Product used for unknown indication
     Dates: start: 20200101

REACTIONS (1)
  - Supraventricular tachycardia [Recovered/Resolved]

NARRATIVE: CASE EVENT DATE: 20220502
